FAERS Safety Report 6772789-8 (Version None)
Quarter: 2010Q2

REPORT INFORMATION
  Report Type: 
  Country: None (occurrence: None)
  Receive Date: 20100616
  Receipt Date: 20100603
  Transmission Date: 20101027
  Serious: Yes (Other)
  Sender: FDA-Public Use
  Company Number: JP-ELI_LILLY_AND_COMPANY-JP201005007839

PATIENT
  Sex: Female
  Weight: 61 kg

DRUGS (7)
  1. CYMBALTA [Suspect]
     Indication: DEPRESSION
     Dosage: 20 MG, DAILY (1/D)
     Route: 048
     Dates: start: 20100507, end: 20100507
  2. CYMBALTA [Suspect]
     Dosage: 20 MG, DAILY (1/D)
     Route: 048
     Dates: start: 20100509, end: 20100510
  3. TOPIRAMATE [Concomitant]
     Indication: EPILEPSY
     Dosage: 100 MG, DAILY (1/D)
     Route: 048
     Dates: start: 20081211
  4. GLUTATHIONE [Concomitant]
     Indication: NAUSEA
     Dosage: 200 MG, DAILY (1/D)
     Route: 048
     Dates: start: 20100401
  5. SINGULAIR [Concomitant]
     Indication: RHINITIS ALLERGIC
     Dosage: 10 MG, DAILY (1/D)
     Route: 048
     Dates: start: 20090205
  6. SPIRIVA [Concomitant]
     Indication: EMPHYSEMA
     Dosage: 18 UG, DAILY (1/D)
     Route: 055
     Dates: start: 20081115
  7. CALONAL [Concomitant]
     Indication: HEADACHE
     Dosage: 600 MG, DAILY (1/D)
     Route: 048
     Dates: start: 20090507

REACTIONS (3)
  - DYSPNOEA [None]
  - LARYNGEAL OEDEMA [None]
  - NAUSEA [None]
